FAERS Safety Report 4942962-X (Version None)
Quarter: 2006Q1

REPORT INFORMATION
  Report Type: 
  Country: None (occurrence: None)
  Receive Date: 20060309
  Receipt Date: 20051118
  Transmission Date: 20060701
  Serious: Yes (Hospitalization)
  Sender: FDA-Public Use
  Company Number: 23100232

PATIENT
  Age: 75 Year
  Sex: Male
  Weight: 73 kg

DRUGS (8)
  1. NOVASTAN [Suspect]
     Indication: CORONARY ANGIOPLASTY
     Dosage: 20 MCG/KG/MIN ONCE IV
     Route: 042
     Dates: start: 20051103
  2. NOVASTAN [Suspect]
     Indication: CORONARY ANGIOPLASTY
     Dosage: 20 MCG/KG/MIN ONCE IV
     Route: 042
     Dates: start: 20051103, end: 20051103
  3. METOPROLOL [Concomitant]
  4. CAPTOPRIL [Concomitant]
  5. ISOSORBID [Concomitant]
  6. ASPIRIN [Concomitant]
  7. SIMVASTATIN [Concomitant]
  8. CLOPIDOGREL [Concomitant]

REACTIONS (5)
  - BLOOD PH DECREASED [None]
  - DIARRHOEA [None]
  - INFECTION [None]
  - MYALGIA [None]
  - RHABDOMYOLYSIS [None]
